FAERS Safety Report 25541682 (Version 1)
Quarter: 2025Q3

REPORT INFORMATION
  Report Type: Spontaneous
  Country: US (occurrence: US)
  Receive Date: 20250711
  Receipt Date: 20250711
  Transmission Date: 20251020
  Serious: Yes (Other)
  Sender: CSL BEHRING
  Company Number: US-BEH-2025212093

PATIENT
  Age: 16 Year
  Sex: Male

DRUGS (8)
  1. IDELVION [Suspect]
     Active Substance: COAGULATION FACTOR IX RECOMBINANT HUMAN
     Indication: Factor IX deficiency
     Dosage: 4800 IU, QOW
     Route: 042
     Dates: start: 201606
  2. IDELVION [Suspect]
     Active Substance: COAGULATION FACTOR IX RECOMBINANT HUMAN
     Indication: Factor IX deficiency
     Dosage: 4800 IU, QOW
     Route: 042
     Dates: start: 201606
  3. IDELVION [Suspect]
     Active Substance: COAGULATION FACTOR IX RECOMBINANT HUMAN
     Route: 042
     Dates: start: 201606
  4. IDELVION [Suspect]
     Active Substance: COAGULATION FACTOR IX RECOMBINANT HUMAN
     Route: 042
     Dates: start: 201606
  5. IDELVION [Suspect]
     Active Substance: COAGULATION FACTOR IX RECOMBINANT HUMAN
     Indication: Factor IX deficiency
     Route: 042
     Dates: start: 201606
  6. IDELVION [Suspect]
     Active Substance: COAGULATION FACTOR IX RECOMBINANT HUMAN
     Indication: Factor IX deficiency
     Route: 042
     Dates: start: 201606
  7. IDELVION [Suspect]
     Active Substance: COAGULATION FACTOR IX RECOMBINANT HUMAN
     Dosage: 4800 IU, QOW
     Route: 042
     Dates: start: 201606
  8. IDELVION [Suspect]
     Active Substance: COAGULATION FACTOR IX RECOMBINANT HUMAN
     Dosage: 4800 IU, QOW
     Route: 042
     Dates: start: 201606

REACTIONS (3)
  - Haemarthrosis [Recovered/Resolved]
  - Osteorrhagia [Recovered/Resolved]
  - Road traffic accident [Unknown]

NARRATIVE: CASE EVENT DATE: 20250529
